FAERS Safety Report 24097832 (Version 1)
Quarter: 2024Q3

REPORT INFORMATION
  Report Type: Spontaneous
  Country: CN (occurrence: CN)
  Receive Date: 20240716
  Receipt Date: 20240716
  Transmission Date: 20241017
  Serious: Yes (Hospitalization)
  Sender: AMGEN
  Company Number: CN-AMGEN-CHNSP2024136636

PATIENT
  Age: 61 Year
  Sex: Male
  Weight: 41 kg

DRUGS (5)
  1. XGEVA [Suspect]
     Active Substance: DENOSUMAB
     Indication: Neoplasm malignant
     Dosage: 120 MILLIGRAM, UNK
     Route: 058
     Dates: start: 20240627, end: 20240627
  2. OXALIPLATIN [Suspect]
     Active Substance: OXALIPLATIN
     Indication: Neoplasm malignant
     Dosage: 150 MILLIGRAM (BATCH LOT: FAIE3007A)
     Route: 042
     Dates: start: 20240625, end: 20240625
  3. DOCETAXEL [Suspect]
     Active Substance: DOCETAXEL\DOCETAXEL ANHYDROUS
     Indication: Neoplasm malignant
     Dosage: 80 MILLIGRAM, (LOT: 9021240301)
     Route: 042
     Dates: start: 20240625, end: 20240625
  4. DEXTROSE [Suspect]
     Active Substance: DEXTROSE\DEXTROSE MONOHYDRATE
     Indication: Unevaluable therapy
     Dosage: 500 MILLILITER (LOT: A231209031)
     Route: 042
     Dates: start: 20240625, end: 20240625
  5. SODIUM CHLORIDE [Suspect]
     Active Substance: SODIUM CHLORIDE
     Indication: Unevaluable therapy
     Dosage: 250 MILLILITER (LOT: SB23122610)
     Route: 042
     Dates: start: 20240625, end: 20240625

REACTIONS (1)
  - Myelosuppression [Recovering/Resolving]

NARRATIVE: CASE EVENT DATE: 20240701
